FAERS Safety Report 8451477-6 (Version None)
Quarter: 2012Q2

REPORT INFORMATION
  Report Type: 
  Country: None (occurrence: None)
  Receive Date: 20120620
  Receipt Date: 20120304
  Transmission Date: 20120825
  Serious: No
  Sender: FDA-Public Use
  Company Number: US-VERTEX PHARMACEUTICALS INC.-AE-2012-003110

PATIENT
  Sex: Male
  Weight: 70.824 kg

DRUGS (6)
  1. IBUPROPHEN [Concomitant]
     Indication: PAIN
     Route: 048
  2. RIBASPHERE [Concomitant]
     Indication: HEPATITIS C
     Route: 048
     Dates: start: 20120224
  3. INCIVEK [Suspect]
     Indication: HEPATITIS C
     Route: 048
     Dates: start: 20120224
  4. PEGASYS [Concomitant]
     Indication: HEPATITIS C
     Route: 058
     Dates: start: 20120224
  5. XANAX [Concomitant]
     Indication: ANXIETY
     Route: 048
  6. LISINOPRIL [Concomitant]
     Indication: HYPERTENSION
     Route: 048

REACTIONS (7)
  - NAUSEA [None]
  - CONSTIPATION [None]
  - SWEATING FEVER [None]
  - DRUG DOSE OMISSION [None]
  - FATIGUE [None]
  - CHILLS [None]
  - DECREASED APPETITE [None]
